FAERS Safety Report 5248489-2 (Version None)
Quarter: 2007Q1

REPORT INFORMATION
  Report Type: 
  Country: None (occurrence: None)
  Receive Date: 20070227
  Receipt Date: 20070215
  Transmission Date: 20070707
  Serious: No
  Sender: FDA-Public Use
  Company Number: JP-PFIZER INC-2006072393

PATIENT
  Age: 43 Year
  Sex: Female

DRUGS (8)
  1. IRINOTECAN HCL [Suspect]
     Indication: CHLOROMA
     Dosage: FREQ:DAY 1, 8, 15 OF EACH 4-WEEKS COURSE
     Route: 042
     Dates: start: 20040801, end: 20040801
  2. CISPLATIN [Suspect]
     Indication: CHLOROMA
     Dosage: FREQ:ON DAY 1 OF EACH 4-WEEKS COURSE
     Dates: start: 20040801, end: 20040801
  3. DESMOPRESSIN [Concomitant]
     Route: 045
  4. THEOPHYLLINE [Concomitant]
  5. HUSTAGIN [Concomitant]
  6. CODEINE PHOSPHATE [Concomitant]
  7. MAGNESIUM OXIDE [Concomitant]
  8. PRIMPERAN [Concomitant]

REACTIONS (3)
  - DIARRHOEA [None]
  - NAUSEA [None]
  - NEUTROPENIA [None]
